FAERS Safety Report 7941652-9 (Version None)
Quarter: 2011Q4

REPORT INFORMATION
  Report Type: 
  Country: None (occurrence: None)
  Receive Date: 20111128
  Receipt Date: 20111128
  Transmission Date: 20120403
  Serious: Yes (Other)
  Sender: FDA-Public Use
  Company Number: None

PATIENT
  Age: 56 Year
  Sex: Female
  Weight: 70.306 kg

DRUGS (2)
  1. HYMED-LIQUID SOAP W/ HYRALURONIC [Suspect]
     Indication: DRUG THERAPY
     Dosage: MORN + NIGHT
     Dates: start: 20101114, end: 20111107
  2. HYLUNIA-CREAM W/ HYRALURONIC ACI [Concomitant]

REACTIONS (4)
  - DRUG HYPERSENSITIVITY [None]
  - ARTHRALGIA [None]
  - RASH [None]
  - URTICARIA [None]
